FAERS Safety Report 5023574-9 (Version None)
Quarter: 2006Q2

REPORT INFORMATION
  Report Type: 
  Country: None (occurrence: None)
  Receive Date: 20060612
  Receipt Date: 20060531
  Transmission Date: 20061013
  Serious: Yes (Hospitalization)
  Sender: FDA-Public Use
  Company Number: FR-ROCHE-450274

PATIENT
  Sex: Male

DRUGS (3)
  1. PEGASYS [Suspect]
     Indication: HEPATITIS C
     Route: 065
  2. COPEGUS [Suspect]
     Indication: HEPATITIS C
     Route: 065
  3. UNSPECIFIED DRUG [Concomitant]
     Indication: HIV INFECTION
     Dosage: DRUG REPORTED AS ANTI-HIV TREATMENT.

REACTIONS (4)
  - HERPES VIRUS INFECTION [None]
  - HERPES ZOSTER [None]
  - HYPOACUSIS [None]
  - NECROTISING RETINITIS [None]
